FAERS Safety Report 8557558-0 (Version None)
Quarter: 2012Q3

REPORT INFORMATION
  Report Type: 
  Country: None (occurrence: None)
  Receive Date: 20120725
  Receipt Date: 20120725
  Transmission Date: 20120928
  Serious: No
  Sender: FDA-Public Use
  Company Number: None

PATIENT
  Sex: Male

DRUGS (2)
  1. KLONOPIN [Suspect]
     Indication: OBSESSIVE-COMPULSIVE DISORDER
     Dosage: KLONOPIN 0.5MG 1QHS #30
  2. KLONOPIN [Suspect]
     Indication: ANXIETY
     Dosage: KLONOPIN 0.5MG 1QHS #30

REACTIONS (2)
  - DRUG INEFFECTIVE [None]
  - SEDATION [None]
